FAERS Safety Report 18240882 (Version 1)
Quarter: 2020Q3

REPORT INFORMATION
  Report Type: Spontaneous
  Country: US (occurrence: US)
  Receive Date: 20200908
  Receipt Date: 20200908
  Transmission Date: 20201103
  Serious: Yes (Other)
  Sender: FDA-Public Use
  Company Number: US-GLAXOSMITHKLINE-US2020180003

PATIENT
  Age: 61 Year

DRUGS (2)
  1. RANITIDINE. [Suspect]
     Active Substance: RANITIDINE
  2. ZANTAC [Suspect]
     Active Substance: RANITIDINE HYDROCHLORIDE

REACTIONS (6)
  - Lung neoplasm malignant [Unknown]
  - Gastric cancer [Unknown]
  - Renal cancer [Unknown]
  - Uterine cancer [Unknown]
  - Bladder cancer [Unknown]
  - Ovarian cancer [Unknown]
